FAERS Safety Report 9184546 (Version 1)
Quarter: 2013Q1

REPORT INFORMATION
  Report Type: Spontaneous
  Country: AU (occurrence: AU)
  Receive Date: 20130322
  Receipt Date: 20130322
  Transmission Date: 20140127
  Serious: Yes (Other)
  Sender: FDA-Public Use
  Company Number: PHHY2013AU027868

PATIENT
  Sex: Female

DRUGS (4)
  1. ACLASTA [Suspect]
     Dosage: UNK UKN, UNK
     Route: 042
  2. CALTRATE [Concomitant]
     Dosage: UNK UKN, UNK
  3. METOPROLOL TARTRATE [Concomitant]
     Dosage: UNK UKN, UNK
  4. OSTELIN 1000 [Concomitant]
     Dosage: UNK UKN, UNK

REACTIONS (2)
  - Polyarthritis [Unknown]
  - Synovitis [Unknown]
